FAERS Safety Report 16960897 (Version 3)
Quarter: 2020Q3

REPORT INFORMATION
  Report Type: Report from Study
  Country: BR (occurrence: BR)
  Receive Date: 20191025
  Receipt Date: 20191223
  Transmission Date: 20201105
  Serious: Yes (Other)
  Sender: FDA-Public Use
  Company Number: PHHY2019BR214866

PATIENT
  Age: 61 Year
  Sex: Female
  Weight: 60 kg

DRUGS (5)
  1. GILENYA [Suspect]
     Active Substance: FINGOLIMOD HYDROCHLORIDE
     Dosage: 0.5 MG, QD
     Route: 048
  2. GLIFAGE [Concomitant]
     Active Substance: METFORMIN HYDROCHLORIDE
     Indication: TYPE 2 DIABETES MELLITUS
     Dosage: 750 MG, Q12H
     Route: 048
  3. SYNTHROID [Concomitant]
     Active Substance: LEVOTHYROXINE SODIUM
     Indication: THYROIDECTOMY
     Dosage: 75 MG
     Route: 048
  4. GILENYA [Suspect]
     Active Substance: FINGOLIMOD HYDROCHLORIDE
     Indication: MULTIPLE SCLEROSIS
     Dosage: 0.5 MG, QD
     Route: 048
     Dates: start: 20190807
  5. GALVUS [Suspect]
     Active Substance: VILDAGLIPTIN
     Indication: TYPE 2 DIABETES MELLITUS
     Dosage: 50 MG
     Route: 048
     Dates: start: 2014

REACTIONS (14)
  - Peripheral coldness [Unknown]
  - Alopecia [Unknown]
  - Visual impairment [Unknown]
  - Madarosis [Unknown]
  - Hypoaesthesia [Unknown]
  - Vision blurred [Unknown]
  - Lymphopenia [Not Recovered/Not Resolved]
  - Lymphocyte count decreased [Recovering/Resolving]
  - Sinusitis [Not Recovered/Not Resolved]
  - Fatigue [Unknown]
  - Headache [Not Recovered/Not Resolved]
  - Bronchitis [Unknown]
  - Asthenopia [Unknown]
  - Influenza [Unknown]

NARRATIVE: CASE EVENT DATE: 2019
